FAERS Safety Report 9999662 (Version 3)
Quarter: 2014Q3

REPORT INFORMATION
  Report Type: Report from Study
  Country: US (occurrence: US)
  Receive Date: 20140312
  Receipt Date: 20140924
  Transmission Date: 20150326
  Serious: Yes (Other)
  Sender: FDA-Public Use
  Company Number: US-ALEXION PHARMACEUTICALS INC.-A201305079

PATIENT

DRUGS (3)
  1. SOLIRIS [Suspect]
     Active Substance: ECULIZUMAB
     Dosage: 800 MG, Q2W
     Route: 042
     Dates: start: 201308
  2. SOLIRIS [Suspect]
     Active Substance: ECULIZUMAB
     Indication: PAROXYSMAL NOCTURNAL HAEMOGLOBINURIA
     Dosage: UNK
     Route: 042
  3. SOLIRIS [Suspect]
     Active Substance: ECULIZUMAB
     Dosage: 700 MG, UNK
     Route: 042

REACTIONS (12)
  - Aplastic anaemia [Recovering/Resolving]
  - Headache [Unknown]
  - Nausea [Unknown]
  - Retinal vein occlusion [Unknown]
  - Haemorrhage [Unknown]
  - Vertigo [Unknown]
  - Hepatitis B [Unknown]
  - Eye irritation [Unknown]
  - Iron overload [Unknown]
  - Incorrect dose administered [Unknown]
  - Blood lactate dehydrogenase increased [Unknown]
  - Haemolysis [Unknown]
